FAERS Safety Report 5276982-5 (Version None)
Quarter: 2007Q1

REPORT INFORMATION
  Report Type: 
  Country: None (occurrence: None)
  Receive Date: 20070327
  Receipt Date: 20061211
  Transmission Date: 20070707
  Serious: No
  Sender: FDA-Public Use
  Company Number: US-BRISTOL-MYERS SQUIBB COMPANY-13608864

PATIENT

DRUGS (1)
  1. ABATACEPT [Suspect]

REACTIONS (2)
  - HYPERTENSION [None]
  - RENIN INCREASED [None]
